FAERS Safety Report 5504966-8 (Version None)
Quarter: 2007Q4

REPORT INFORMATION
  Report Type: 
  Country: None (occurrence: None)
  Receive Date: 20071102
  Receipt Date: 20071026
  Transmission Date: 20080405
  Serious: Yes (Hospitalization, Other)
  Sender: FDA-Public Use
  Company Number: AU-AVENTIS-200719906GDDC

PATIENT
  Age: 67 Year
  Sex: Female

DRUGS (6)
  1. ARAVA [Suspect]
     Indication: RHEUMATOID ARTHRITIS
     Route: 048
     Dates: start: 20010201
  2. PREDNISOLONE [Concomitant]
     Dosage: DOSE: UNK
  3. WARFARIN SODIUM [Concomitant]
     Dosage: DOSE: UNK
     Dates: start: 20070807
  4. AVAPRO [Concomitant]
     Dosage: DOSE: UNK
  5. CIPRAMIL                           /00582602/ [Concomitant]
     Dosage: DOSE: UNK
  6. SOTALOL HYDROCHLORIDE [Concomitant]
     Dosage: DOSE: UNK
     Dates: start: 20071022

REACTIONS (3)
  - ATRIAL FIBRILLATION [None]
  - DIARRHOEA [None]
  - RECTAL HAEMORRHAGE [None]
